FAERS Safety Report 7141552-0 (Version None)
Quarter: 2010Q4

REPORT INFORMATION
  Report Type: 
  Country: None (occurrence: None)
  Receive Date: 20101126
  Receipt Date: 20101110
  Transmission Date: 20110411
  Serious: Yes (Hospitalization)
  Sender: FDA-Public Use
  Company Number: 2010110039

PATIENT
  Age: 88 Year
  Sex: Female

DRUGS (8)
  1. TORSEMIDE [Suspect]
     Dosage: 10 MG (10 MG, 1 IN 1 D), ORAL
     Route: 048
     Dates: end: 20100805
  2. ALDACTONE [Suspect]
     Dosage: 1 DOSAGE FORMS (1 DOSAGE FORMS, 1 IN 1 D), ORAL
     Route: 048
     Dates: end: 20100805
  3. MICARDIS [Suspect]
     Dosage: 40 MG (40 MG, 1 IN 1 D), ORAL
     Route: 048
     Dates: end: 20100805
  4. METOLAZONE [Suspect]
     Dosage: 1 DOSAGE FORMS (1 IN DOSAGE FORMS, 1 IN 1 D), ORAL
     Route: 048
     Dates: end: 20100805
  5. TIATRAL (ACETYLSALICYLIC ACID) [Concomitant]
  6. BILOL (BISOPROLOL FUMARATE) [Concomitant]
  7. PRAVALOTIN (PRAVASTATIN SODIUM) [Concomitant]
  8. LEVOTHYROXINE SODIUM [Concomitant]

REACTIONS (8)
  - ASTHENIA [None]
  - BRADYCARDIA [None]
  - DRUG INTERACTION [None]
  - HAEMODIALYSIS [None]
  - HYPERKALAEMIA [None]
  - METABOLIC ACIDOSIS [None]
  - RENAL FAILURE ACUTE [None]
  - WEIGHT DECREASED [None]
